FAERS Safety Report 19634550 (Version 1)
Quarter: 2021Q3

REPORT INFORMATION
  Report Type: Report from Study
  Country: CL (occurrence: CL)
  Receive Date: 20210729
  Receipt Date: 20210729
  Transmission Date: 20211014
  Serious: Yes (Life-Threatening, Other)
  Sender: FDA-Public Use
  Company Number: CL-TAKEDA-2021TUS003706

PATIENT
  Age: 3 Year
  Sex: Male

DRUGS (4)
  1. IDURSULFASE [Suspect]
     Active Substance: IDURSULFASE
     Indication: MUCOPOLYSACCHARIDOSIS II
     Dosage: 6 MILLIGRAM, 1/WEEK
     Route: 042
     Dates: start: 20210115
  2. IDURSULFASE [Suspect]
     Active Substance: IDURSULFASE
     Dosage: 1 VIAL, EVERY 7 DAYS
     Route: 042
  3. IDURSULFASE [Suspect]
     Active Substance: IDURSULFASE
     Dosage: 0.5 MILLIGRAM/KILOGRAM
     Route: 042
  4. IDURSULFASE [Suspect]
     Active Substance: IDURSULFASE
     Dosage: 0.5 MILLIGRAM/KILOGRAM, WEEKLY
     Route: 042

REACTIONS (9)
  - Presyncope [Recovering/Resolving]
  - Nasopharyngitis [Recovered/Resolved]
  - Nasal congestion [Recovering/Resolving]
  - Tremor [Recovering/Resolving]
  - Infusion related reaction [Recovering/Resolving]
  - Pyrexia [Recovered/Resolved]
  - Tooth infection [Recovering/Resolving]
  - Rhinitis [Recovered/Resolved]
  - Cyanosis [Recovered/Resolved]

NARRATIVE: CASE EVENT DATE: 20210115
